APPROVED DRUG PRODUCT: CROMOLYN SODIUM
Active Ingredient: CROMOLYN SODIUM
Strength: 10MG/ML
Dosage Form/Route: SOLUTION;INHALATION
Application: A075271 | Product #001 | TE Code: AN
Applicant: TEVA PHARMACEUTICALS USA
Approved: Jan 18, 2000 | RLD: No | RS: Yes | Type: RX